FAERS Safety Report 14507880 (Version 1)
Quarter: 2018Q1

REPORT INFORMATION
  Report Type: Spontaneous
  Country: GB (occurrence: GB)
  Receive Date: 20180208
  Receipt Date: 20180208
  Transmission Date: 20180509
  Serious: Yes (Other)
  Sender: FDA-Public Use
  Company Number: GB-BAXTER-2018BAX004497

PATIENT
  Age: 25 Year
  Sex: Male

DRUGS (12)
  1. IFOSFAMIDE INJECTION 2G [Suspect]
     Active Substance: IFOSFAMIDE
     Indication: RETROPERITONEAL CANCER
     Dosage: DISSOLVED IN 9 LITERS OF NORMAL SALINE
     Route: 041
  2. IFOSFAMIDE INJECTION 2G [Suspect]
     Active Substance: IFOSFAMIDE
     Dosage: SECOND COURSE
     Route: 065
  3. METOCLOPRAMIDE. [Concomitant]
     Active Substance: METOCLOPRAMIDE
     Indication: ANTIEMETIC SUPPORTIVE CARE
     Route: 048
  4. DOXORUBICIN [Concomitant]
     Active Substance: DOXORUBICIN
     Dosage: SECOND COURSE
     Route: 065
  5. MESNA. [Suspect]
     Active Substance: MESNA
     Indication: PRODUCT USED FOR UNKNOWN INDICATION
     Dosage: DISSOLVED IN 9 LITERS OF NORMAL SALINE
     Route: 041
  6. DIAMORPHINE [Concomitant]
     Active Substance: DIAMORPHINE
     Indication: ANTIEMETIC SUPPORTIVE CARE
     Dosage: A DOSE OF 5-10 MG
     Route: 048
  7. NORMAL SALINE [Concomitant]
     Active Substance: SODIUM CHLORIDE
     Indication: MEDICATION DILUTION
     Route: 041
  8. VINCRISTINE [Concomitant]
     Active Substance: VINCRISTINE
     Indication: RETROPERITONEAL CANCER
     Route: 040
  9. WARFARIN [Suspect]
     Active Substance: WARFARIN
     Indication: PROPHYLAXIS
     Route: 065
  10. CHLORPROMAZINE. [Concomitant]
     Active Substance: CHLORPROMAZINE
     Indication: ANTIEMETIC SUPPORTIVE CARE
     Route: 048
  11. DOXORUBICIN [Concomitant]
     Active Substance: DOXORUBICIN
     Indication: RETROPERITONEAL CANCER
     Route: 040
  12. VINCRISTINE [Concomitant]
     Active Substance: VINCRISTINE
     Dosage: SECOND COURSE
     Route: 065

REACTIONS (2)
  - International normalised ratio increased [Unknown]
  - Drug interaction [Unknown]
